FAERS Safety Report 23217110 (Version 1)
Quarter: 2023Q4

REPORT INFORMATION
  Report Type: Spontaneous
  Country: CN (occurrence: CN)
  Receive Date: 20231122
  Receipt Date: 20231122
  Transmission Date: 20240110
  Serious: Yes (Other)
  Sender: FDA-Public Use
  Company Number: CN-009507513-2311CHN006019

PATIENT
  Age: 78 Year
  Sex: Male
  Weight: 50 kg

DRUGS (1)
  1. CILASTATIN SODIUM\IMIPENEM [Suspect]
     Active Substance: CILASTATIN SODIUM\IMIPENEM
     Indication: Pyelonephritis acute
     Dosage: 1 G, TID
     Route: 041
     Dates: start: 20231019, end: 20231024

REACTIONS (6)
  - Epilepsy [Recovering/Resolving]
  - Blood pressure abnormal [Recovering/Resolving]
  - Muscle twitching [Recovering/Resolving]
  - Heart rate abnormal [Recovering/Resolving]
  - Respiration abnormal [Recovering/Resolving]
  - Body temperature abnormal [Recovering/Resolving]

NARRATIVE: CASE EVENT DATE: 20231022
